FAERS Safety Report 5099715-4 (Version None)
Quarter: 2006Q3

REPORT INFORMATION
  Report Type: 
  Country: None (occurrence: None)
  Receive Date: 20060908
  Receipt Date: 20060905
  Transmission Date: 20061208
  Serious: Yes (Other)
  Sender: FDA-Public Use
  Company Number: BR-GLAXOSMITHKLINE-A0619383A

PATIENT
  Age: 27 Year
  Sex: Female
  Weight: 59 kg

DRUGS (2)
  1. ZYBAN [Suspect]
     Dosage: 150MG SEE DOSAGE TEXT
     Route: 048
     Dates: start: 20060901, end: 20060904
  2. UNSPECIFIED MEDICATION [Concomitant]

REACTIONS (5)
  - DRY MOUTH [None]
  - FEAR [None]
  - HALLUCINATION [None]
  - INSOMNIA [None]
  - TREMOR [None]
